FAERS Safety Report 4608261-0 (Version None)
Quarter: 2005Q1

REPORT INFORMATION
  Report Type: 
  Country: None (occurrence: None)
  Receive Date: 20050311
  Receipt Date: 20050302
  Transmission Date: 20050727
  Serious: No
  Sender: FDA-Public Use
  Company Number: 2005PK00377

PATIENT
  Age: 19 Year
  Sex: Female

DRUGS (1)
  1. SEROQUEL [Suspect]
     Dosage: DAILY DOSE RANGE FROM 400 TO 600 MG
     Dates: start: 20020305, end: 20020829

REACTIONS (1)
  - LEUKOPENIA [None]
